FAERS Safety Report 9228365 (Version 4)
Quarter: 2013Q2

REPORT INFORMATION
  Report Type: Spontaneous
  Country: US (occurrence: US)
  Receive Date: 20130412
  Receipt Date: 20130607
  Transmission Date: 20140414
  Serious: Yes (Hospitalization, Other)
  Sender: FDA-Public Use
  Company Number: US-PFIZER INC-2013112954

PATIENT
  Sex: Male

DRUGS (2)
  1. ACCUPRIL [Suspect]
     Dosage: UNK
  2. BACTRIM [Concomitant]
     Dosage: UNK

REACTIONS (1)
  - HIV infection [Unknown]
